FAERS Safety Report 5639739-9 (Version None)
Quarter: 2008Q1

REPORT INFORMATION
  Report Type: 
  Country: None (occurrence: None)
  Receive Date: 20080226
  Receipt Date: 20080218
  Transmission Date: 20080703
  Serious: Yes (Other)
  Sender: FDA-Public Use
  Company Number: US-BAYER-200810047NA

PATIENT
  Age: 53 Year
  Sex: Male

DRUGS (2)
  1. NEXAVAR [Suspect]
     Indication: HEPATIC NEOPLASM MALIGNANT
     Dosage: TOTAL DAILY DOSE: 800 MG  UNIT DOSE: 200 MG
     Route: 048
  2. COUMADIN [Concomitant]
     Dosage: TOTAL DAILY DOSE: 10 MG
     Route: 048

REACTIONS (5)
  - ANOREXIA [None]
  - ARTHRALGIA [None]
  - CONSTIPATION [None]
  - FATIGUE [None]
  - PLATELET COUNT DECREASED [None]
